FAERS Safety Report 25001671 (Version 1)
Quarter: 2025Q1

REPORT INFORMATION
  Report Type: Spontaneous
  Country: BR (occurrence: BR)
  Receive Date: 20250223
  Receipt Date: 20250223
  Transmission Date: 20250408
  Serious: Yes (Other)
  Sender: BRISTOL-MYERS SQUIBB COMPANY
  Company Number: BR-BRISTOL-MYERS SQUIBB COMPANY-2025-022491

PATIENT
  Age: 62 Year
  Sex: Male

DRUGS (4)
  1. OPDIVO [Suspect]
     Active Substance: NIVOLUMAB
     Indication: Clear cell renal cell carcinoma
     Dates: start: 202007, end: 202009
  2. OPDIVO [Suspect]
     Active Substance: NIVOLUMAB
     Dates: end: 202108
  3. OPDIVO [Suspect]
     Active Substance: NIVOLUMAB
     Dates: start: 202112
  4. YERVOY [Suspect]
     Active Substance: IPILIMUMAB
     Indication: Clear cell renal cell carcinoma
     Dates: start: 202007, end: 202009

REACTIONS (5)
  - Lumbar vertebral fracture [Recovering/Resolving]
  - Dyspnoea [Unknown]
  - Bronchospasm [Unknown]
  - Obstructive airways disorder [Recovering/Resolving]
  - Pruritus [Unknown]

NARRATIVE: CASE EVENT DATE: 20210601
